FAERS Safety Report 17730217 (Version 4)
Quarter: 2020Q3

REPORT INFORMATION
  Report Type: Spontaneous
  Country: US (occurrence: US)
  Receive Date: 20200430
  Receipt Date: 20200924
  Transmission Date: 20201102
  Serious: No
  Sender: FDA-Public Use
  Company Number: US-BLUEPRINT MEDICINES CORPORATION-SP-US-2020-000221

PATIENT
  Age: 63 Year
  Sex: Female

DRUGS (2)
  1. AYVAKIT [Suspect]
     Active Substance: AVAPRITINIB
     Indication: GASTROINTESTINAL STROMAL TUMOUR
     Route: 048
     Dates: start: 20200126
  2. AYVAKIT [Suspect]
     Active Substance: AVAPRITINIB
     Route: 048
     Dates: start: 20200126

REACTIONS (17)
  - Memory impairment [Unknown]
  - White blood cell count decreased [Unknown]
  - Nervous system disorder [Recovering/Resolving]
  - Hair colour changes [Not Recovered/Not Resolved]
  - Dizziness [Unknown]
  - Fatigue [Not Recovered/Not Resolved]
  - Nausea [Unknown]
  - Pain [Unknown]
  - Asthenia [Unknown]
  - Pallor [Not Recovered/Not Resolved]
  - Haematocrit decreased [Unknown]
  - Sleep disorder [Not Recovered/Not Resolved]
  - Product dose omission issue [Unknown]
  - Red blood cell count decreased [Unknown]
  - Somnolence [Unknown]
  - Alopecia [Unknown]
  - Abdominal pain [Not Recovered/Not Resolved]
